FAERS Safety Report 25876417 (Version 1)
Quarter: 2025Q4

REPORT INFORMATION
  Report Type: Report from Study
  Country: ZA (occurrence: ZA)
  Receive Date: 20251003
  Receipt Date: 20251003
  Transmission Date: 20260117
  Serious: Yes (Hospitalization)
  Sender: ABBVIE
  Company Number: ZA-ABBVIE-6487464

PATIENT
  Age: 12 Year
  Sex: Male

DRUGS (1)
  1. BOTOX [Suspect]
     Active Substance: ONABOTULINUMTOXINA
     Indication: Cerebral palsy
     Dosage: TIME INTERVAL: AS NECESSARY: FORM STRENGTH: 200 UNIT, FREQUENCY: EVERY FOUR TO SIX MONTHS
     Route: 065
     Dates: start: 20221107, end: 20221107

REACTIONS (1)
  - Illness [Unknown]
